FAERS Safety Report 14564701 (Version 1)
Quarter: 2018Q1

REPORT INFORMATION
  Report Type: Report from Study
  Country: None (occurrence: CO)
  Receive Date: 20180222
  Receipt Date: 20180222
  Transmission Date: 20180509
  Serious: Yes (Other)
  Sender: FDA-Public Use
  Company Number: CO-ABBVIE-18K-036-2265858-00

PATIENT
  Age: 66 Year
  Sex: Female
  Weight: 62 kg

DRUGS (1)
  1. HUMIRA [Suspect]
     Active Substance: ADALIMUMAB
     Indication: RHEUMATOID ARTHRITIS
     Route: 058
     Dates: start: 20170519

REACTIONS (7)
  - Eye pruritus [Recovering/Resolving]
  - Eye oedema [Recovering/Resolving]
  - Eye discharge [Recovering/Resolving]
  - Pruritus [Recovering/Resolving]
  - Cellulitis [Recovering/Resolving]
  - Dry skin [Recovering/Resolving]
  - Lacrimation increased [Recovering/Resolving]

NARRATIVE: CASE EVENT DATE: 201711
